FAERS Safety Report 7861730-2 (Version None)
Quarter: 2011Q4

REPORT INFORMATION
  Report Type: 
  Country: None (occurrence: None)
  Receive Date: 20111027
  Receipt Date: 20111019
  Transmission Date: 20120403
  Serious: Yes (Death, Other)
  Sender: FDA-Public Use
  Company Number: GR-BAXTER-2011BH033458

PATIENT
  Age: 62 Year
  Sex: Male
  Weight: 82 kg

DRUGS (18)
  1. METOCLOPRAMIDE [Suspect]
     Indication: PRODUCT USED FOR UNKNOWN INDICATION
     Route: 065
     Dates: start: 20111004, end: 20111004
  2. ATROPINE [Suspect]
     Indication: NEUROMUSCULAR BLOCKADE REVERSAL
     Route: 065
     Dates: start: 20111004, end: 20111004
  3. ACETAMINOPHEN [Suspect]
     Indication: PRODUCT USED FOR UNKNOWN INDICATION
     Route: 065
     Dates: start: 20111004, end: 20111004
  4. NEOSTIGMINE [Suspect]
     Indication: NEUROMUSCULAR BLOCKADE REVERSAL
     Route: 065
     Dates: start: 20111004, end: 20111004
  5. LACTATED RINGER'S [Suspect]
     Indication: PRODUCT USED FOR UNKNOWN INDICATION
     Route: 065
     Dates: start: 20111004, end: 20111004
  6. NAROPIN [Suspect]
     Indication: PRODUCT USED FOR UNKNOWN INDICATION
     Route: 065
     Dates: start: 20111004, end: 20111004
  7. NAROPIN [Suspect]
     Route: 050
     Dates: start: 20111004, end: 20111004
  8. NAROPIN [Suspect]
     Route: 065
     Dates: start: 20111004, end: 20111004
  9. CISATRACURIUM BESYLATE [Suspect]
     Indication: HYPOTONIA
     Route: 065
     Dates: start: 20111004, end: 20111004
  10. FENTANYL-100 [Concomitant]
     Indication: PRODUCT USED FOR UNKNOWN INDICATION
     Route: 065
  11. SODIUM CHLORIDE 0.9% IN PLASTIC CONTAINER [Suspect]
     Indication: PRODUCT USED FOR UNKNOWN INDICATION
     Route: 065
     Dates: start: 20111004, end: 20111004
  12. MORPHINE [Suspect]
     Route: 042
     Dates: start: 20111004, end: 20111004
  13. REMIFENTANIL [Suspect]
     Indication: ANALGESIC THERAPY
     Route: 042
     Dates: start: 20111004, end: 20111004
  14. RANITIDINE [Suspect]
     Indication: PRODUCT USED FOR UNKNOWN INDICATION
     Route: 065
     Dates: start: 20111004, end: 20111004
  15. MORPHINE [Suspect]
     Indication: PRODUCT USED FOR UNKNOWN INDICATION
     Route: 042
     Dates: start: 20111004, end: 20111004
  16. SUPRANE [Suspect]
     Indication: MAINTENANCE OF ANAESTHESIA
     Route: 055
     Dates: start: 20111004, end: 20111004
  17. ONDASETRON [Suspect]
     Indication: PRODUCT USED FOR UNKNOWN INDICATION
     Route: 065
     Dates: start: 20111004, end: 20111004
  18. PROPOFOL [Concomitant]
     Indication: PRODUCT USED FOR UNKNOWN INDICATION
     Route: 065

REACTIONS (3)
  - ACUTE RESPIRATORY FAILURE [None]
  - PULMONARY GRANULOMA [None]
  - ACUTE RESPIRATORY DISTRESS SYNDROME [None]
